FAERS Safety Report 6915293-6 (Version None)
Quarter: 2010Q3

REPORT INFORMATION
  Report Type: 
  Country: None (occurrence: None)
  Receive Date: 20100809
  Receipt Date: 20090929
  Transmission Date: 20110219
  Serious: No
  Sender: FDA-Public Use
  Company Number: US-ABBOTT-09P-163-0600296-00

PATIENT
  Sex: Female

DRUGS (3)
  1. DEPAKOTE ER [Suspect]
     Indication: CONVULSION
     Dates: start: 20040101, end: 20090901
  2. DEPAKOTE ER [Suspect]
     Dates: start: 20090901
  3. TOPAMAX [Concomitant]
     Indication: PRODUCT USED FOR UNKNOWN INDICATION

REACTIONS (3)
  - CONVULSION [None]
  - OEDEMA [None]
  - WEIGHT INCREASED [None]
